FAERS Safety Report 5285228-3 (Version None)
Quarter: 2007Q2

REPORT INFORMATION
  Report Type: 
  Country: None (occurrence: None)
  Receive Date: 20070403
  Receipt Date: 20070323
  Transmission Date: 20071010
  Serious: Yes (Other)
  Sender: FDA-Public Use
  Company Number: HQWYE658123MAR07

PATIENT
  Age: 73 Year
  Sex: Male

DRUGS (6)
  1. CORDARONE [Suspect]
     Indication: ATRIAL FIBRILLATION
     Route: 048
     Dates: start: 20050101
  2. PREVISCAN [Concomitant]
     Indication: ATRIAL FIBRILLATION
     Dosage: UNKNOWN
     Route: 065
     Dates: start: 20050101
  3. LEVOTHYROXINE SODIUM [Concomitant]
     Route: 048
  4. ZITHROMAX [Interacting]
     Indication: BRONCHITIS CHRONIC
     Dosage: UNKNOWN
     Route: 048
     Dates: start: 20061201
  5. FLECAINIDE ACETATE [Concomitant]
     Indication: ATRIAL FIBRILLATION
     Route: 048
     Dates: start: 20050101, end: 20070101
  6. FLECAINIDE ACETATE [Concomitant]
     Dosage: UNKNOWN
     Route: 048
     Dates: start: 20070101

REACTIONS (4)
  - ATRIAL FIBRILLATION [None]
  - BRONCHITIS [None]
  - DRUG INEFFECTIVE [None]
  - DRUG INTERACTION [None]
